FAERS Safety Report 21985013 (Version 1)
Quarter: 2023Q1

REPORT INFORMATION
  Report Type: Spontaneous
  Country: JP (occurrence: JP)
  Receive Date: 20230213
  Receipt Date: 20230213
  Transmission Date: 20230418
  Serious: Yes (Other)
  Sender: FDA-Public Use
  Company Number: JP-Accord-299601

PATIENT
  Age: 36 Year
  Sex: Female

DRUGS (1)
  1. ARIPIPRAZOLE [Suspect]
     Active Substance: ARIPIPRAZOLE
     Indication: Schizophrenia
     Dosage: DOSED-UP TO 30 MG

REACTIONS (2)
  - Psychotic disorder [Recovered/Resolved]
  - Hallucination, visual [Recovered/Resolved]
